FAERS Safety Report 11431260 (Version 1)
Quarter: 2015Q3

REPORT INFORMATION
  Report Type: Spontaneous
  Country: CA (occurrence: CA)
  Receive Date: 20150828
  Receipt Date: 20150828
  Transmission Date: 20151125
  Serious: Yes (Hospitalization, Other)
  Sender: FDA-Public Use
  Company Number: CA-BAXTER-2015BAX044699

PATIENT
  Age: 58 Year
  Sex: Male

DRUGS (1)
  1. ACID CONCENTRATE D12305 [Suspect]
     Active Substance: ACETIC ACID\CALCIUM CHLORIDE\DEXTROSE\MAGNESIUM CHLORIDE\POTASSIUM CHLORIDE\SODIUM CHLORIDE
     Indication: HAEMODIALYSIS
     Dosage: 7 HOURS NOCTURNALLY
     Route: 065

REACTIONS (3)
  - Sepsis [Recovering/Resolving]
  - Device related infection [None]
  - Osteomyelitis [Recovering/Resolving]

NARRATIVE: CASE EVENT DATE: 2015
